FAERS Safety Report 20054776 (Version 1)
Quarter: 2021Q4

REPORT INFORMATION
  Report Type: Spontaneous
  Country: NO (occurrence: NO)
  Receive Date: 20211110
  Receipt Date: 20211110
  Transmission Date: 20220303
  Serious: Yes (Disabling, Other)
  Sender: FDA-Public Use
  Company Number: None

PATIENT
  Age: 55 Year
  Sex: Female
  Weight: 57 kg

DRUGS (2)
  1. CYCLOSPORINE [Suspect]
     Active Substance: CYCLOSPORINE
     Indication: Eye inflammation
     Dosage: UNK
     Route: 047
     Dates: start: 202009, end: 202009
  2. CARBOMER [Concomitant]
     Active Substance: CARBOMER
     Indication: Dry eye
     Dosage: EVERY 2. HOUR
     Dates: start: 2019, end: 202001

REACTIONS (5)
  - Visual impairment [Recovered/Resolved with Sequelae]
  - Eye pain [Recovered/Resolved with Sequelae]
  - Disability [Unknown]
  - Visual impairment [Unknown]
  - Epiretinal membrane [Unknown]

NARRATIVE: CASE EVENT DATE: 20200901
